FAERS Safety Report 5848864-9 (Version None)
Quarter: 2008Q3

REPORT INFORMATION
  Report Type: 
  Country: None (occurrence: None)
  Receive Date: 20080818
  Receipt Date: 20080806
  Transmission Date: 20090109
  Serious: Yes (Other)
  Sender: FDA-Public Use
  Company Number: GB-JNJCH-2008020556

PATIENT
  Sex: Female

DRUGS (2)
  1. NICORETTE [Suspect]
     Indication: SMOKING CESSATION THERAPY
     Dosage: TEXT:UNSPECIFIED
     Route: 062
  2. NICORETTE [Suspect]
     Indication: SMOKING CESSATION THERAPY
     Dosage: TEXT:UNSPECIFIED
     Route: 062

REACTIONS (3)
  - DEPENDENCE [None]
  - HYPERHIDROSIS [None]
  - MALAISE [None]
